FAERS Safety Report 5509957-9 (Version None)
Quarter: 2007Q4

REPORT INFORMATION
  Report Type: 
  Country: None (occurrence: None)
  Receive Date: 20071107
  Receipt Date: 20071107
  Transmission Date: 20080405
  Serious: No
  Sender: FDA-Public Use
  Company Number: None

PATIENT
  Age: 46 Year
  Sex: Female
  Weight: 74.8435 kg

DRUGS (3)
  1. CYMBALTA [Suspect]
     Indication: FIBROMYALGIA
     Dosage: 1 DAILY PO
     Route: 048
     Dates: start: 20071101, end: 20071102
  2. CYMBALTA [Suspect]
     Indication: PAIN
     Dosage: 1 DAILY PO
     Route: 048
     Dates: start: 20071101, end: 20071102
  3. CYMBALTA [Suspect]
     Indication: STRESS
     Dosage: 1 DAILY PO
     Route: 048
     Dates: start: 20071101, end: 20071102

REACTIONS (7)
  - BEDRIDDEN [None]
  - DEPRESSED LEVEL OF CONSCIOUSNESS [None]
  - DYSKINESIA [None]
  - FEELING ABNORMAL [None]
  - NAUSEA [None]
  - TREMOR [None]
  - VERTIGO [None]
